FAERS Safety Report 22693635 (Version 2)
Quarter: 2024Q1

REPORT INFORMATION
  Report Type: Spontaneous
  Country: US (occurrence: US)
  Receive Date: 20230711
  Receipt Date: 20240207
  Transmission Date: 20240410
  Serious: No
  Sender: FDA-Public Use
  Company Number: US-PFIZER INC-US-GBT-018586

PATIENT
  Age: 13 Year
  Sex: Female

DRUGS (3)
  1. OXBRYTA [Suspect]
     Active Substance: VOXELOTOR
     Indication: Sickle cell disease
     Dosage: 1500 MG, 1X/DAY
     Route: 048
     Dates: start: 2021
  2. OXBRYTA [Suspect]
     Active Substance: VOXELOTOR
     Dosage: 1500 MG (500MG/3 TABLETS BY MOUTH ONCE DAILY)
     Route: 048
  3. OXBRYTA [Suspect]
     Active Substance: VOXELOTOR
     Dosage: 500MG/3 TABLETS BY MOUTH ONCE DAILY
     Route: 048

REACTIONS (5)
  - Product dose omission issue [Unknown]
  - Product dose omission in error [Unknown]
  - Product use complaint [Unknown]
  - Product size issue [Unknown]
  - Treatment noncompliance [Not Recovered/Not Resolved]
